FAERS Safety Report 26034657 (Version 1)
Quarter: 2025Q4

REPORT INFORMATION
  Report Type: Spontaneous
  Country: AR (occurrence: AR)
  Receive Date: 20251112
  Receipt Date: 20251112
  Transmission Date: 20260118
  Serious: Yes (Other)
  Sender: MYLAN
  Company Number: AR-MYLANLABS-2025M1094836

PATIENT
  Age: 52 Year
  Sex: Female

DRUGS (10)
  1. CLOZAPINE [Suspect]
     Active Substance: CLOZAPINE
     Indication: Major depression
     Dosage: 100 MILLIGRAM
  2. CLOZAPINE [Suspect]
     Active Substance: CLOZAPINE
     Indication: Insomnia
     Dosage: 150 MILLIGRAM
  3. CLOZAPINE [Suspect]
     Active Substance: CLOZAPINE
     Dosage: 200 MILLIGRAM
  4. CLOZAPINE [Suspect]
     Active Substance: CLOZAPINE
     Dosage: 200 MILLIGRAM, PM (NIGHT 10PM)
     Dates: start: 2025, end: 20251106
  5. VENLAFAXINE [Concomitant]
     Active Substance: VENLAFAXINE HYDROCHLORIDE
     Indication: Antidepressant therapy
     Dosage: 225 MILLIGRAM, AM (ONCE DAILY AT 8 A.M.)
  6. LITHIUM CARBONATE [Concomitant]
     Active Substance: LITHIUM CARBONATE
     Indication: Affective disorder
     Dosage: 225 MILLIGRAM, BID (EVERY 12H (12 P.M. AND 8 P.M.))
  7. OLANZAPINE [Concomitant]
     Active Substance: OLANZAPINE
     Indication: Antipsychotic therapy
     Dosage: 10 MILLIGRAM, PM (AT 10PM)
  8. LORAZEPAM [Concomitant]
     Active Substance: LORAZEPAM
     Indication: Anxiolytic therapy
     Dosage: UNK, QID ( 2.5 MG AT 8 P.M. + 1.25 MG AT 8 A.M., 12 P.M., AND 4 P.M.)
  9. ZOLPIDEM [Concomitant]
     Active Substance: ZOLPIDEM TARTRATE
     Indication: Hypnotherapy
     Dosage: 10 MILLIGRAM, PM (AT 10PM)
  10. Kritel [Concomitant]
     Indication: Constipation
     Dosage: 10 MILLILITER, BID (EVERY 12H FOR 2 DAYS)

REACTIONS (8)
  - Leukopenia [Not Recovered/Not Resolved]
  - Neutropenia [Not Recovered/Not Resolved]
  - Mean cell haemoglobin increased [Recovering/Resolving]
  - Lymphocyte count increased [Not Recovered/Not Resolved]
  - Red blood cell count decreased [Not Recovered/Not Resolved]
  - Haematocrit decreased [Not Recovered/Not Resolved]
  - Haemoglobin decreased [Not Recovered/Not Resolved]
  - Mean cell volume increased [Not Recovered/Not Resolved]

NARRATIVE: CASE EVENT DATE: 20251103
